FAERS Safety Report 25273289 (Version 1)
Quarter: 2025Q2

REPORT INFORMATION
  Report Type: Spontaneous
  Country: US (occurrence: US)
  Receive Date: 20250506
  Receipt Date: 20250506
  Transmission Date: 20250716
  Serious: Yes (Hospitalization, Other)
  Sender: AMNEAL
  Company Number: US-AMNEAL PHARMACEUTICALS-2024-AMRX-03267

PATIENT
  Sex: Male
  Weight: 7.664 kg

DRUGS (1)
  1. VIGABATRIN [Suspect]
     Active Substance: VIGABATRIN
     Indication: Product used for unknown indication
     Dosage: 500 MILLIGRAM, 2X/DAY
     Route: 048
     Dates: start: 202407

REACTIONS (1)
  - Seizure [Not Recovered/Not Resolved]
